FAERS Safety Report 20192545 (Version 2)
Quarter: 2022Q4

REPORT INFORMATION
  Report Type: Spontaneous
  Country: US (occurrence: US)
  Receive Date: 20211216
  Receipt Date: 20221216
  Transmission Date: 20230112
  Serious: No
  Sender: FDA-Public Use
  Company Number: US-ENDO PHARMACEUTICALS INC-2021-001527

PATIENT
  Sex: Male

DRUGS (11)
  1. XIAFLEX [Suspect]
     Active Substance: COLLAGENASE CLOSTRIDIUM HISTOLYTICUM
     Indication: Peyronie^s disease
     Dosage: UNK UNKNOWN, UNKNOWN; (CYCLE ONE, INJECTION ONE, PLAQUE ONE)
     Route: 026
     Dates: start: 20210301
  2. XIAFLEX [Suspect]
     Active Substance: COLLAGENASE CLOSTRIDIUM HISTOLYTICUM
     Dosage: UNK UNKNOWN, UNKNOWN; (CYCLE ONE, INJECTION TWO, PLAQUE ONE)
     Route: 026
     Dates: start: 20210303
  3. XIAFLEX [Suspect]
     Active Substance: COLLAGENASE CLOSTRIDIUM HISTOLYTICUM
     Dosage: UNK UNKNOWN, UNKNOWN; (CYCLE TWO, INJECTION ONE, PLAQUE ONE)
     Route: 026
     Dates: start: 20210408
  4. XIAFLEX [Suspect]
     Active Substance: COLLAGENASE CLOSTRIDIUM HISTOLYTICUM
     Dosage: UNK UNKNOWN, UNKNOWN; (CYCLE THREE, INJECTION ONE, PLAQUE ONE)
     Route: 026
     Dates: start: 20210804
  5. XIAFLEX [Suspect]
     Active Substance: COLLAGENASE CLOSTRIDIUM HISTOLYTICUM
     Dosage: UNK UNKNOWN, UNKNOWN; (CYCLE THREE, INJECTION TWO, PLAQUE ONE)
     Route: 026
     Dates: start: 20210806
  6. XIAFLEX [Suspect]
     Active Substance: COLLAGENASE CLOSTRIDIUM HISTOLYTICUM
     Dosage: UNK UNKNOWN, UNKNOWN; (CYCLE FOUR, INJECTION ONE, PLAQUE ONE)
     Route: 026
     Dates: start: 20210915
  7. XIAFLEX [Suspect]
     Active Substance: COLLAGENASE CLOSTRIDIUM HISTOLYTICUM
     Dosage: UNK UNKNOWN, UNKNOWN; (CYCLE FOUR, INJECTION TWO, PLAQUE ONE)
     Route: 026
     Dates: start: 20210917
  8. XIAFLEX [Suspect]
     Active Substance: COLLAGENASE CLOSTRIDIUM HISTOLYTICUM
     Dosage: UNK UNKNOWN, UNKNOWN; (CYCLE ONE, INJECTION ONE, PLAQUE TWO)
     Route: 026
     Dates: start: 20220222
  9. XIAFLEX [Suspect]
     Active Substance: COLLAGENASE CLOSTRIDIUM HISTOLYTICUM
     Dosage: UNK UNKNOWN, UNKNOWN; (CYCLE ONE, INJECTION TWO, PLAQUE TWO)
     Route: 026
     Dates: start: 20220223
  10. XIAFLEX [Suspect]
     Active Substance: COLLAGENASE CLOSTRIDIUM HISTOLYTICUM
     Dosage: UNK UNKNOWN, UNKNOWN; (CYCLE TWO, INJECTION ONE, PLAQUE TWO)
     Route: 026
     Dates: start: 20220418
  11. XIAFLEX [Suspect]
     Active Substance: COLLAGENASE CLOSTRIDIUM HISTOLYTICUM
     Dosage: UNK UNKNOWN, UNKNOWN; (CYCLE TWO, INJECTION TWO, PLAQUE TWO)
     Route: 026
     Dates: start: 20220420

REACTIONS (7)
  - Peyronie^s disease [Unknown]
  - Pain [Unknown]
  - Injection site mass [Unknown]
  - Haematoma [Unknown]
  - Swelling [Unknown]
  - Product dose omission issue [Unknown]
  - Drug ineffective [Unknown]

NARRATIVE: CASE EVENT DATE: 20210101
